FAERS Safety Report 8369317-2 (Version None)
Quarter: 2012Q2

REPORT INFORMATION
  Report Type: 
  Country: None (occurrence: None)
  Receive Date: 20120518
  Receipt Date: 20120514
  Transmission Date: 20120825
  Serious: Yes (Hospitalization)
  Sender: FDA-Public Use
  Company Number: PHHO2012RU004946

PATIENT
  Sex: Male
  Weight: 64 kg

DRUGS (6)
  1. BLINDED NO TREATMENT RECEIVED [Suspect]
     Indication: NON-HODGKIN'S LYMPHOMA
     Dosage: CODE NOT BROKEN
     Route: 042
     Dates: start: 20120131
  2. CYCLOPHOSPHAMIDE [Suspect]
     Indication: NON-HODGKIN'S LYMPHOMA
     Dosage: 995.6 MG, QD
     Route: 042
     Dates: start: 20120131
  3. PREDNISOLONE [Suspect]
     Indication: NON-HODGKIN'S LYMPHOMA
     Dosage: 100 MG/D
     Route: 048
     Dates: start: 20120131
  4. BLINDED GP2013 [Suspect]
     Indication: NON-HODGKIN'S LYMPHOMA
     Dosage: CODE NOT BROKEN
     Route: 042
     Dates: start: 20120131
  5. VINCRISTINE [Suspect]
     Indication: NON-HODGKIN'S LYMPHOMA
     Dosage: 2 MG, QD
     Route: 042
     Dates: start: 20120131
  6. BLINDED MABTHERA [Suspect]
     Indication: NON-HODGKIN'S LYMPHOMA
     Dosage: CODE NOT BROKEN
     Route: 042
     Dates: start: 20120131

REACTIONS (2)
  - FEBRILE NEUTROPENIA [None]
  - INFECTIOUS PERITONITIS [None]
